FAERS Safety Report 7394127-2 (Version None)
Quarter: 2011Q2

REPORT INFORMATION
  Report Type: 
  Country: None (occurrence: None)
  Receive Date: 20110405
  Receipt Date: 20110325
  Transmission Date: 20111010
  Serious: Yes (Other)
  Sender: FDA-Public Use
  Company Number: BR-ELI_LILLY_AND_COMPANY-BR201103007755

PATIENT
  Age: 50 Year
  Sex: Female

DRUGS (1)
  1. CYMBALTA [Suspect]
     Dosage: UNK UNK, UNKNOWN
     Route: 065

REACTIONS (2)
  - INTRAOCULAR PRESSURE INCREASED [None]
  - GLAUCOMA [None]
